FAERS Safety Report 24593372 (Version 1)
Quarter: 2024Q4

REPORT INFORMATION
  Report Type: Spontaneous
  Country: US (occurrence: None)
  Receive Date: 20241107
  Receipt Date: 20241107
  Transmission Date: 20250114
  Serious: Yes (Death)
  Sender: Public
  Company Number: None

PATIENT
  Age: 57 Year
  Sex: Male

DRUGS (1)
  1. QUTENZA [Suspect]
     Active Substance: CAPSAICIN
     Dosage: 1 PATCH KIT PERCENT -%  APPLY 1 PATCH IN THE OFFICE TOPICAL?
     Route: 061

REACTIONS (1)
  - Death [None]

NARRATIVE: CASE EVENT DATE: 20241105
